FAERS Safety Report 9539431 (Version 3)
Quarter: 2013Q4

REPORT INFORMATION
  Report Type: Report from Study
  Country: US (occurrence: US)
  Receive Date: 20130920
  Receipt Date: 20131024
  Transmission Date: 20140711
  Serious: Yes (Hospitalization)
  Sender: FDA-Public Use
  Company Number: US-MERCK-1309USA007063

PATIENT
  Age: 75 Year
  Sex: Female
  Weight: 79.6 kg

DRUGS (3)
  1. MK-7965 [Suspect]
     Indication: PLASMA CELL MYELOMA
     Dosage: 12 MG/M2, 2 HOURS ON DAYS 1,8, AND 15, CYCLE=28 DAYS
     Route: 042
     Dates: start: 20130904, end: 20130904
  2. BORTEZOMIB [Suspect]
     Indication: PLASMA CELL MYELOMA
     Dosage: 1 MG/M2 ON DAYS 1, 8 AND 15, CYCLICAL, CYCLE= 28 DAYS
     Route: 058
     Dates: start: 20130904, end: 20130904
  3. DEXAMETHASONE [Suspect]
     Indication: PLASMA CELL MYELOMA
     Dosage: 20 MG ON DAYS 1,2,8,9,15 AND 16 CYCLICAL
     Route: 048
     Dates: start: 20130904, end: 20130905

REACTIONS (1)
  - Pyrexia [Recovered/Resolved with Sequelae]
